FAERS Safety Report 5936411-2 (Version None)
Quarter: 2008Q4

REPORT INFORMATION
  Report Type: 
  Country: None (occurrence: None)
  Receive Date: 20081030
  Receipt Date: 19950301
  Transmission Date: 20090506
  Serious: Yes (Hospitalization)
  Sender: FDA-Public Use
  Company Number: US-BAXTER-2008BH010716

PATIENT
  Age: 65 Year
  Sex: Female

DRUGS (1)
  1. HEPARIN SODIUM 5,000 UNITS IN DEXTROSE 5% [Suspect]
     Indication: CORONARY ARTERIAL STENT INSERTION
     Route: 042

REACTIONS (1)
  - ACTIVATED PARTIAL THROMBOPLASTIN TIME SHORTENED [None]
